FAERS Safety Report 4770835-4 (Version None)
Quarter: 2005Q3

REPORT INFORMATION
  Report Type: 
  Country: None (occurrence: None)
  Receive Date: 20050915
  Receipt Date: 20050804
  Transmission Date: 20060218
  Serious: Yes (Disabling, Other)
  Sender: FDA-Public Use
  Company Number: GB-GLAXOSMITHKLINE-B0389670A

PATIENT
  Age: 19 Year
  Sex: Female
  Weight: 43 kg

DRUGS (1)
  1. ALBENDAZOLE [Suspect]
     Indication: STRONGYLOIDIASIS
     Dosage: 2TAB PER DAY
     Dates: start: 20050725, end: 20050728

REACTIONS (6)
  - APHASIA [None]
  - CONFUSIONAL STATE [None]
  - DELUSION [None]
  - DISORIENTATION [None]
  - FATIGUE [None]
  - JAUNDICE [None]
